FAERS Safety Report 10441480 (Version 1)
Quarter: 2014Q3

REPORT INFORMATION
  Report Type: Spontaneous
  Country: US (occurrence: None)
  Receive Date: 20140908
  Receipt Date: 20140908
  Transmission Date: 20150326
  Serious: Yes (Other)
  Sender: FDA-Public Use
  Company Number: None

PATIENT
  Age: 34 Year
  Sex: Female
  Weight: 81.65 kg

DRUGS (2)
  1. DEPO-MEDROL [Suspect]
     Active Substance: METHYLPREDNISOLONE ACETATE
     Indication: PARANASAL SINUS DISCOMFORT
     Dosage: SHOT INTO THE MUSCLE
     Route: 030
     Dates: start: 20140824, end: 20140824
  2. DEPO-MEDROL [Suspect]
     Active Substance: METHYLPREDNISOLONE ACETATE
     Indication: BALANCE DISORDER
     Dosage: SHOT INTO THE MUSCLE
     Route: 030
     Dates: start: 20140824, end: 20140824

REACTIONS (11)
  - Pyrexia [None]
  - Vomiting [None]
  - Weight decreased [None]
  - Dehydration [None]
  - Insomnia [None]
  - Restless legs syndrome [None]
  - No therapeutic response [None]
  - Asthenia [None]
  - Oesophageal pain [None]
  - Feeling jittery [None]
  - Muscle spasms [None]

NARRATIVE: CASE EVENT DATE: 20140824
